FAERS Safety Report 23736646 (Version 1)
Quarter: 2024Q2

REPORT INFORMATION
  Report Type: Spontaneous
  Country: JP (occurrence: JP)
  Receive Date: 20240412
  Receipt Date: 20240412
  Transmission Date: 20240715
  Serious: Yes (Other)
  Sender: FDA-Public Use
  Company Number: JP-MSD-M2024-04585

PATIENT
  Age: 65 Year
  Sex: Male

DRUGS (5)
  1. KEYTRUDA [Suspect]
     Active Substance: PEMBROLIZUMAB
     Indication: Renal cell carcinoma stage IV
     Dosage: 200 MILLIGRAM, Q3W
     Route: 041
  2. KEYTRUDA [Suspect]
     Active Substance: PEMBROLIZUMAB
     Dosage: 200 MILLIGRAM, Q3W
     Route: 041
     Dates: start: 2024, end: 2024
  3. LENVATINIB MESYLATE [Concomitant]
     Active Substance: LENVATINIB MESYLATE
     Indication: Renal cell carcinoma stage IV
     Dosage: 20 MILLIGRAM, QD
     Route: 048
     Dates: start: 202401, end: 2024
  4. LENVATINIB MESYLATE [Concomitant]
     Active Substance: LENVATINIB MESYLATE
     Dosage: 14 MILLIGRAM, QD
     Route: 048
     Dates: start: 2024, end: 2024
  5. LENVATINIB MESYLATE [Concomitant]
     Active Substance: LENVATINIB MESYLATE
     Dosage: 10 MILLIGRAM, QD
     Route: 048
     Dates: start: 202402, end: 202403

REACTIONS (4)
  - Cardiac failure [Recovered/Resolved]
  - Liver disorder [Unknown]
  - Rash [Recovered/Resolved]
  - Face oedema [Recovered/Resolved]

NARRATIVE: CASE EVENT DATE: 20240101
